FAERS Safety Report 17114160 (Version 1)
Quarter: 2019Q4

REPORT INFORMATION
  Report Type: Spontaneous
  Country: US (occurrence: US)
  Receive Date: 20191205
  Receipt Date: 20191205
  Transmission Date: 20200122
  Serious: Yes (Other)
  Sender: FDA-Public Use
  Company Number: US-TEVA-2019-US-1148346

PATIENT
  Sex: Male

DRUGS (1)
  1. VECURONIUM BROMIDE. [Suspect]
     Active Substance: VECURONIUM BROMIDE
     Dosage: DOSE STRENGTH:  10 ?MG/VIAL
     Route: 065

REACTIONS (2)
  - Surgery [Unknown]
  - Anaphylactic reaction [Unknown]
